FAERS Safety Report 5502286-9 (Version None)
Quarter: 2007Q4

REPORT INFORMATION
  Report Type: 
  Country: None (occurrence: None)
  Receive Date: 20071030
  Receipt Date: 20071016
  Transmission Date: 20080405
  Serious: Yes (Hospitalization)
  Sender: FDA-Public Use
  Company Number: ES-RANBAXY-2007RR-10777

PATIENT

DRUGS (9)
  1. CLARITHROMYCIN 500MG TABLETS [Suspect]
     Indication: HELICOBACTER INFECTION
     Dosage: 500 MG, BID
     Route: 048
  2. DIGOXIN [Suspect]
     Indication: HELICOBACTER INFECTION
     Dosage: 0.25 MG, QD
     Route: 048
  3. AMOXICILLIN [Concomitant]
     Indication: HELICOBACTER INFECTION
     Dosage: 1 G, BID
     Route: 048
  4. OMEPRAZOLE [Concomitant]
     Indication: HELICOBACTER INFECTION
     Dosage: 20 MG, QD
     Route: 048
  5. LOSARTAN RANBAXY 50MG COMPRIMIDOS EFG [Concomitant]
     Dosage: 50 MG, QD
     Route: 048
  6. FUROSEMIDE [Concomitant]
     Dosage: 40 MG, QD
     Route: 048
  7. AMLODIPINE [Concomitant]
     Dosage: 5 MG, QD
     Route: 048
  8. NITROGLYCERIN [Concomitant]
     Dosage: 5 MG, UNK
     Route: 058
  9. ACENOCOUMAROL [Concomitant]
     Route: 048

REACTIONS (2)
  - DRUG INTERACTION [None]
  - THERAPEUTIC AGENT TOXICITY [None]
